FAERS Safety Report 17438130 (Version 1)
Quarter: 2020Q1

REPORT INFORMATION
  Report Type: Spontaneous
  Country: NL (occurrence: NL)
  Receive Date: 20200220
  Receipt Date: 20200220
  Transmission Date: 20200409
  Serious: Yes (Hospitalization, Other)
  Sender: FDA-Public Use
  Company Number: NL-MICRO LABS LIMITED-ML2020-00466

PATIENT
  Age: 46 Year
  Sex: Female

DRUGS (5)
  1. ISOSORBIDE MONONITRATE. [Concomitant]
     Active Substance: ISOSORBIDE MONONITRATE
     Indication: PRINZMETAL ANGINA
     Dosage: CONTROLLED RELEASE, (TDD 120 MG),
  2. VERAPAMIL HYDROCHLORIDE. [Suspect]
     Active Substance: VERAPAMIL HYDROCHLORIDE
     Dosage: NORMAL RELEASE
  3. NITROGLYCERINE [Concomitant]
     Active Substance: NITROGLYCERIN
     Indication: BLOOD PRESSURE FLUCTUATION
     Dosage: 1.5 MG/HOUR
     Route: 042
  4. VERAPAMIL HYDROCHLORIDE. [Suspect]
     Active Substance: VERAPAMIL HYDROCHLORIDE
     Indication: PRINZMETAL ANGINA
     Dosage: CONTROLLED RELEASE; TOTAL DAILY DOSE (TDD) 480 MG
  5. PERINDOPRIL [Concomitant]
     Active Substance: PERINDOPRIL
     Dosage: (TDD 2 MG).

REACTIONS (3)
  - Cardiac arrest [Recovering/Resolving]
  - Incorrect product dosage form administered [Unknown]
  - Withdrawal syndrome [Recovering/Resolving]
